FAERS Safety Report 9858740 (Version 1)
Quarter: 2014Q1

REPORT INFORMATION
  Report Type: Spontaneous
  Country: US (occurrence: None)
  Receive Date: 20140130
  Receipt Date: 20140130
  Transmission Date: 20141002
  Serious: Yes (Other)
  Sender: FDA-Public Use
  Company Number: None

PATIENT
  Age: 57 Year
  Sex: Female
  Weight: 80.74 kg

DRUGS (1)
  1. ASTHMANEFRIN [Suspect]
     Indication: OXYGEN SATURATION DECREASED
     Route: 055
     Dates: start: 20131011, end: 20131201

REACTIONS (2)
  - Device malfunction [None]
  - Product quality issue [None]
